FAERS Safety Report 19507295 (Version 1)
Quarter: 2021Q3

REPORT INFORMATION
  Report Type: Report from Study
  Country: DE (occurrence: DE)
  Receive Date: 20210708
  Receipt Date: 20210708
  Transmission Date: 20211014
  Serious: Yes (Hospitalization, Other)
  Sender: FDA-Public Use
  Company Number: DE-TAKEDA-2021TEU006080

PATIENT
  Age: 67 Year
  Sex: Male

DRUGS (7)
  1. ETORICOXIB. [Suspect]
     Active Substance: ETORICOXIB
     Indication: METASTATIC MALIGNANT MELANOMA
     Dosage: 60 MILLIGRAM
     Route: 048
     Dates: start: 20141104, end: 20141130
  2. IXOTEN [Suspect]
     Active Substance: TROFOSFAMIDE
     Dosage: UNK
     Route: 065
  3. TEMSIROLIMUS. [Suspect]
     Active Substance: TEMSIROLIMUS
     Indication: METASTATIC MALIGNANT MELANOMA
     Dosage: 25 MILLIGRAM
     Route: 042
     Dates: start: 20141104, end: 20141125
  4. IXOTEN [Suspect]
     Active Substance: TROFOSFAMIDE
     Indication: METASTATIC MALIGNANT MELANOMA
     Dosage: 150 MILLIGRAM
     Route: 048
     Dates: start: 20141104, end: 20141130
  5. PIOGLITAZONE. [Suspect]
     Active Substance: PIOGLITAZONE
     Indication: METASTATIC MALIGNANT MELANOMA
     Dosage: 60 MILLIGRAM
     Route: 048
     Dates: start: 20141104, end: 20141130
  6. PIOGLITAZONE. [Suspect]
     Active Substance: PIOGLITAZONE
     Dosage: UNK
     Route: 065
  7. ETORICOXIB. [Suspect]
     Active Substance: ETORICOXIB
     Dosage: UNK
     Route: 065

REACTIONS (1)
  - Erysipelas [Recovered/Resolved]

NARRATIVE: CASE EVENT DATE: 20141130
